FAERS Safety Report 16881749 (Version 1)
Quarter: 2019Q4

REPORT INFORMATION
  Report Type: Report from Study
  Country: CA (occurrence: CA)
  Receive Date: 20191003
  Receipt Date: 20191003
  Transmission Date: 20200122
  Serious: Yes (Life-Threatening, Hospitalization, Other)
  Sender: FDA-Public Use
  Company Number: CA-MYLANLABS-2019M1080770

PATIENT
  Age: 60 Year
  Sex: Female
  Weight: 67 kg

DRUGS (16)
  1. LAMICTAL [Concomitant]
     Active Substance: LAMOTRIGINE
  2. ATIVAN [Concomitant]
     Active Substance: LORAZEPAM
     Dosage: UNK
  3. DEXILANT [Concomitant]
     Active Substance: DEXLANSOPRAZOLE
     Dosage: UNK
  4. LOXAPAC                            /00401801/ [Concomitant]
     Active Substance: LOXAPINE
     Dosage: UNK
  5. IMOVANE [Concomitant]
     Active Substance: ZOPICLONE
  6. CLOZAPINE. [Suspect]
     Active Substance: CLOZAPINE
     Dosage: 275 MILLIGRAM, HS
     Dates: start: 2019, end: 20190826
  7. KEMADRIN [Concomitant]
     Active Substance: PROCYCLIDINE HYDROCHLORIDE
     Dosage: UNK
  8. LIPITOR [Concomitant]
     Active Substance: ATORVASTATIN CALCIUM
     Dosage: UNK
  9. SEROQUEL [Concomitant]
     Active Substance: QUETIAPINE FUMARATE
     Dosage: UNK
  10. ABILIFY MAINTENA [Concomitant]
     Active Substance: ARIPIPRAZOLE
     Dosage: UNK
  11. VITAMIN D                          /00107901/ [Concomitant]
     Active Substance: ERGOCALCIFEROL
     Dosage: UNK
  12. TIAZAC [Concomitant]
     Active Substance: DILTIAZEM HYDROCHLORIDE
     Dosage: UNK
  13. LAX A DAY PHARMA [Concomitant]
     Dosage: UNK
  14. CLOZAPINE. [Suspect]
     Active Substance: CLOZAPINE
     Indication: BIPOLAR DISORDER
     Dosage: UNK
     Dates: start: 20190606
  15. FERROUS SULFATE. [Concomitant]
     Active Substance: FERROUS SULFATE
     Dosage: UNK
  16. SYNTHROID [Concomitant]
     Active Substance: LEVOTHYROXINE SODIUM
     Dosage: UNK

REACTIONS (9)
  - Febrile neutropenia [Unknown]
  - Pneumonia [Unknown]
  - Leukopenia [Unknown]
  - Pneumonia aspiration [Unknown]
  - Product use in unapproved indication [Unknown]
  - Aspergillus infection [Unknown]
  - Dysphagia [Unknown]
  - Oesophagitis [Unknown]
  - Agranulocytosis [Unknown]

NARRATIVE: CASE EVENT DATE: 2019
